FAERS Safety Report 7432420-5 (Version None)
Quarter: 2011Q2

REPORT INFORMATION
  Report Type: 
  Country: None (occurrence: None)
  Receive Date: 20110422
  Receipt Date: 20110408
  Transmission Date: 20111010
  Serious: No
  Sender: FDA-Public Use
  Company Number: US-B.I. PHARMACEUTICALS,INC./RIDGEFIELD-2011-BP-10447BP

PATIENT
  Sex: Female

DRUGS (9)
  1. VITAMIN B INJECTION [Concomitant]
     Indication: VITAMIN B COMPLEX DEFICIENCY
     Dates: start: 20101101
  2. K-DUR [Concomitant]
     Indication: BLOOD POTASSIUM DECREASED
     Dates: start: 20010101
  3. NEXIUM [Concomitant]
     Dosage: 40 MG
     Route: 048
     Dates: start: 20090101
  4. CHLORTHALIDONE [Concomitant]
     Indication: OEDEMA
     Dosage: 12.5 MG
     Route: 048
     Dates: start: 20110301
  5. PRADAXA [Suspect]
     Dosage: 300 MG
     Dates: start: 20110301
  6. AMLODIPINE [Concomitant]
     Indication: HYPERTENSION
     Dosage: 5 MG
     Route: 048
     Dates: start: 20100901
  7. TRAVATAN [Concomitant]
     Indication: GLAUCOMA
     Dates: start: 20080101
  8. TOPICORT EYEDROPS [Concomitant]
     Indication: EYE INFECTION
     Dates: start: 20110201
  9. BRIMONIDINE [Concomitant]
     Indication: EYE INFECTION
     Dates: start: 20110201

REACTIONS (3)
  - DYSPEPSIA [None]
  - HAEMORRHAGE [None]
  - LIMB INJURY [None]
